FAERS Safety Report 21315408 (Version 1)
Quarter: 2022Q3

REPORT INFORMATION
  Report Type: Spontaneous
  Country: US (occurrence: None)
  Receive Date: 20220909
  Receipt Date: 20220909
  Transmission Date: 20221027
  Serious: No
  Sender: FDA-Public Use
  Company Number: US-ARIS GLOBAL-202112-2240

PATIENT
  Sex: Male

DRUGS (8)
  1. OXERVATE [Suspect]
     Active Substance: CENEGERMIN-BKBJ
     Indication: Neurotrophic keratopathy
     Route: 047
     Dates: start: 20211122
  2. INSULIN + SYRINGES [Concomitant]
  3. MODAFINIL [Concomitant]
     Active Substance: MODAFINIL
  4. SULFAMETHOXAZOLE\TRIMETHOPRIM [Concomitant]
     Active Substance: SULFAMETHOXAZOLE\TRIMETHOPRIM
  5. GABAPENTIN [Concomitant]
     Active Substance: GABAPENTIN
  6. PREDNISONE [Concomitant]
     Active Substance: PREDNISONE
  7. METFORMIN ER GASTRIC [Concomitant]
  8. CELLCEPT [Concomitant]
     Active Substance: MYCOPHENOLATE MOFETIL

REACTIONS (1)
  - Wrong technique in product usage process [Unknown]
